FAERS Safety Report 5961499-2 (Version None)
Quarter: 2008Q4

REPORT INFORMATION
  Report Type: 
  Country: None (occurrence: None)
  Receive Date: 20081119
  Receipt Date: 20081107
  Transmission Date: 20090506
  Serious: Yes (Other)
  Sender: FDA-Public Use
  Company Number: 231615K08USA

PATIENT
  Age: 40 Year
  Sex: Female
  Weight: 45 kg

DRUGS (3)
  1. REBIF [Suspect]
     Indication: MULTIPLE SCLEROSIS
     Dosage: 44 MCG, 3 IN 1 WEEKS, SUBCUTANEOUS
     Route: 058
     Dates: start: 20051122, end: 20080101
  2. SOMA [Concomitant]
  3. PERCOCET [Concomitant]

REACTIONS (5)
  - ADRENAL NEOPLASM [None]
  - ANXIETY [None]
  - HYPERHIDROSIS [None]
  - NERVOUSNESS [None]
  - WEIGHT [None]
